FAERS Safety Report 16724435 (Version 2)
Quarter: 2019Q3

REPORT INFORMATION
  Report Type: Spontaneous
  Country: FR (occurrence: FR)
  Receive Date: 20190821
  Receipt Date: 20190821
  Transmission Date: 20191005
  Serious: Yes (Death, Hospitalization, Other)
  Sender: FDA-Public Use
  Company Number: FR-PFIZER INC-2019354017

PATIENT
  Age: 78 Year
  Sex: Male

DRUGS (13)
  1. ALDACTONE [Suspect]
     Active Substance: SPIRONOLACTONE
     Indication: HYPERTENSION
     Dosage: 50 MG, 1X/DAY
     Route: 048
     Dates: end: 20190512
  2. RAMIPRIL. [Suspect]
     Active Substance: RAMIPRIL
     Indication: HYPERTENSION
     Dosage: 10 MG, 1X/DAY
     Route: 048
     Dates: end: 20190512
  3. PERMIXON [Concomitant]
     Active Substance: HERBALS\SAW PALMETTO
     Dosage: 1 DF, 1X/DAY
     Route: 048
  4. COAPROVEL [Suspect]
     Active Substance: HYDROCHLOROTHIAZIDE\IRBESARTAN
     Indication: HYPERTENSION
     Dosage: 1 DF (150 MG/12.5 MG TABLET), 1X/DAY
     Route: 048
     Dates: end: 20190512
  5. ESOMEPRAZOLE. [Concomitant]
     Active Substance: ESOMEPRAZOLE MAGNESIUM
     Dosage: 40 MG, 1X/DAY
     Route: 048
  6. DICLOFENAC [Suspect]
     Active Substance: DICLOFENAC
     Dosage: 2 DF, 1X/DAY
     Route: 048
     Dates: end: 20190512
  7. VENTOLINE [SALBUTAMOL] [Concomitant]
     Active Substance: ALBUTEROL SULFATE
     Dosage: UNK
     Route: 055
  8. ULTIBRO BREEZHALER [Concomitant]
     Active Substance: GLYCOPYRRONIUM\INDACATEROL
     Dosage: UNK
     Route: 055
  9. LEXOMIL [Concomitant]
     Active Substance: BROMAZEPAM
     Dosage: UNK
     Route: 048
  10. NOCTAMIDE [Concomitant]
     Active Substance: LORMETAZEPAM
     Dosage: 2 MG, 1X/DAY
     Route: 048
  11. FENOFIBRATE. [Concomitant]
     Active Substance: FENOFIBRATE
     Dosage: UNK (NR)
     Route: 048
  12. ATARAX [Concomitant]
     Active Substance: HYDROXYZINE HYDROCHLORIDE
     Dosage: 25 MG, 1X/DAY
     Route: 048
  13. ALFUZOSINE [ALFUZOSIN HYDROCHLORIDE] [Concomitant]
     Dosage: 1 DF, 1X/DAY
     Route: 048

REACTIONS (2)
  - Death [Fatal]
  - Acute kidney injury [Recovered/Resolved]

NARRATIVE: CASE EVENT DATE: 20190511
